FAERS Safety Report 5202847-0 (Version None)
Quarter: 2006Q4

REPORT INFORMATION
  Report Type: 
  Country: None (occurrence: None)
  Receive Date: 20061016
  Receipt Date: 20020814
  Transmission Date: 20070319
  Serious: Yes (Hospitalization)
  Sender: FDA-Public Use
  Company Number: PHEH2002US07297

PATIENT
  Sex: Female

DRUGS (1)
  1. MIACALCIN [Suspect]
     Dosage: 200 IU, QD, INTRANASAL
     Route: 045
     Dates: start: 20020701

REACTIONS (1)
  - EPISTAXIS [None]
